FAERS Safety Report 8905123 (Version 1)
Quarter: 2012Q4

REPORT INFORMATION
  Report Type: 
  Country: US (occurrence: US)
  Receive Date: 20121109
  Receipt Date: 20121109
  Transmission Date: 20130627
  Serious: Yes (Hospitalization)
  Sender: FDA-Public Use
  Company Number: US-ASTRAZENECA-2012SE83206

PATIENT
  Age: 95 Year
  Sex: Female

DRUGS (1)
  1. SEROQUEL [Suspect]
     Indication: DELUSION
     Route: 048

REACTIONS (8)
  - Bacterial infection [Unknown]
  - Tongue biting [Unknown]
  - Protrusion tongue [Unknown]
  - Listless [Unknown]
  - Appetite disorder [Unknown]
  - Dementia [Unknown]
  - Adverse event [Unknown]
  - Lethargy [Unknown]
